FAERS Safety Report 7707701-8 (Version None)
Quarter: 2011Q3

REPORT INFORMATION
  Report Type: 
  Country: None (occurrence: None)
  Receive Date: 20110824
  Receipt Date: 20110822
  Transmission Date: 20111222
  Serious: No
  Sender: FDA-Public Use
  Company Number: US-TEVA-297488USA

PATIENT
  Sex: Female

DRUGS (6)
  1. ATORVASTATIN CALCIUM [Concomitant]
  2. ERGOCALCIFEROL [Concomitant]
  3. COPAXONE [Suspect]
     Indication: MULTIPLE SCLEROSIS
     Dosage: 20 MILLIGRAM;
     Route: 058
  4. ESCITALOPRAM OXALATE [Concomitant]
  5. CELECOXIB [Concomitant]
  6. LEVOTHYROXINE SODIUM [Concomitant]

REACTIONS (1)
  - OSTEOPENIA [None]
